FAERS Safety Report 21605722 (Version 2)
Quarter: 2023Q1

REPORT INFORMATION
  Report Type: Report from Study
  Country: US (occurrence: US)
  Receive Date: 20221116
  Receipt Date: 20230308
  Transmission Date: 20230418
  Serious: No
  Sender: FDA-Public Use
  Company Number: US-ABBVIE-4141917

PATIENT
  Age: 54 Year
  Sex: Female

DRUGS (2)
  1. HUMIRA [Suspect]
     Active Substance: ADALIMUMAB
     Indication: Psoriatic arthropathy
     Dosage: LAST ADMIN DATE 2022
     Route: 058
     Dates: start: 20220822
  2. HUMIRA [Suspect]
     Active Substance: ADALIMUMAB
     Dosage: RESTARTED HUMIRA
     Route: 058
     Dates: start: 202212

REACTIONS (2)
  - Sinusitis [Recovered/Resolved]
  - Occupational exposure to dust [Not Recovered/Not Resolved]

NARRATIVE: CASE EVENT DATE: 20221001
